FAERS Safety Report 23429382 (Version 1)
Quarter: 2024Q1

REPORT INFORMATION
  Report Type: Spontaneous
  Country: US (occurrence: US)
  Receive Date: 20240122
  Receipt Date: 20240122
  Transmission Date: 20240409
  Serious: Yes (Hospitalization, Other)
  Sender: FDA-Public Use
  Company Number: US-INSUD PHARMA-2401US00328

PATIENT

DRUGS (3)
  1. TESTOSTERONE [Suspect]
     Active Substance: TESTOSTERONE
     Indication: Transgender hormonal therapy
     Dosage: 4 PUMPS DAILY, 1% (50 MG)
     Route: 061
  2. TESTOSTERONE [Suspect]
     Active Substance: TESTOSTERONE
     Dosage: RESTARTED AFTER DISCHARGE (DOSE NOT SPECIFIED)
     Route: 061
  3. TESTOSTERONE [Suspect]
     Active Substance: TESTOSTERONE
     Dosage: RESUMED AFTER 30 DAY HOLD (DOSE NOT SPECIFIED)
     Route: 061

REACTIONS (8)
  - Idiopathic intracranial hypertension [Unknown]
  - Night blindness [Unknown]
  - Papilloedema [Unknown]
  - Headache [Not Recovered/Not Resolved]
  - Nausea [Unknown]
  - Photophobia [Unknown]
  - Hyperacusis [Unknown]
  - Off label use [Unknown]
